FAERS Safety Report 6084308-2 (Version None)
Quarter: 2009Q1

REPORT INFORMATION
  Report Type: 
  Country: None (occurrence: None)
  Receive Date: 20090217
  Receipt Date: 20090217
  Transmission Date: 20090719
  Serious: Yes (Hospitalization)
  Sender: FDA-Public Use
  Company Number: None

PATIENT
  Sex: Female
  Weight: 68.2 kg

DRUGS (2)
  1. ERLOTINIB [Suspect]
     Indication: NON-SMALL CELL LUNG CANCER
     Dosage: 150MG, PO DAILY
     Route: 048
     Dates: start: 20081001, end: 20090113
  2. DASATINIB [Suspect]
     Indication: NON-SMALL CELL LUNG CANCER
     Dosage: 140MG , PO DAILY
     Route: 048
     Dates: start: 20081008, end: 20090113

REACTIONS (2)
  - ABDOMINAL PAIN [None]
  - ABDOMINAL WALL MASS [None]
